FAERS Safety Report 11762703 (Version 1)
Quarter: 2015Q4

REPORT INFORMATION
  Report Type: Spontaneous
  Country: US (occurrence: US)
  Receive Date: 20151120
  Receipt Date: 20151120
  Transmission Date: 20160304
  Serious: No
  Sender: FDA-Public Use
  Company Number: US-ASTRAZENECA-2015SF09322

PATIENT
  Sex: Female
  Weight: 68 kg

DRUGS (1)
  1. SYMBICORT [Suspect]
     Active Substance: BUDESONIDE\FORMOTEROL FUMARATE DIHYDRATE
     Indication: DYSPNOEA
     Dosage: 320 UG,160/4.5MCG INHALER2 PUFFS ,TWO TIMES A DAY
     Route: 055
     Dates: start: 20150618, end: 2015

REACTIONS (4)
  - Body height decreased [Unknown]
  - Off label use [Unknown]
  - Oropharyngeal pain [Unknown]
  - Product use issue [Unknown]
